FAERS Safety Report 14171483 (Version 1)
Quarter: 2017Q4

REPORT INFORMATION
  Report Type: Spontaneous
  Country: US (occurrence: US)
  Receive Date: 20171108
  Receipt Date: 20171108
  Transmission Date: 20180321
  Serious: Yes (Other)
  Sender: FDA-Public Use
  Company Number: US-TEVA-823625USA

PATIENT
  Sex: Male

DRUGS (1)
  1. CARVEDILOL. [Suspect]
     Active Substance: CARVEDILOL
     Indication: HYPERTENSION
     Route: 065
     Dates: end: 2017

REACTIONS (9)
  - Night sweats [Unknown]
  - Fatigue [Unknown]
  - Vasculitis [Unknown]
  - Headache [Unknown]
  - Temperature difference of extremities [Unknown]
  - Urinary tract infection [Unknown]
  - Cellulitis [Unknown]
  - Pyrexia [Unknown]
  - Asthenia [Unknown]
